FAERS Safety Report 6823197-2 (Version None)
Quarter: 2010Q3

REPORT INFORMATION
  Report Type: 
  Country: None (occurrence: None)
  Receive Date: 20100702
  Receipt Date: 20100623
  Transmission Date: 20110219
  Serious: Yes (Other)
  Sender: FDA-Public Use
  Company Number: 10-000882

PATIENT
  Age: 17 Year
  Sex: Female

DRUGS (3)
  1. LOESTRIN 24 FE [Suspect]
     Indication: DEPRESSION
     Dosage: 20/1000 UG, QD, ORAL
     Route: 048
     Dates: start: 20100501
  2. LOESTRIN 24 FE [Suspect]
     Indication: HORMONE LEVEL ABNORMAL
     Dosage: 20/1000 UG, QD, ORAL
     Route: 048
     Dates: start: 20100501
  3. ZOLOFT [Concomitant]

REACTIONS (3)
  - DEPRESSION [None]
  - METRORRHAGIA [None]
  - SUICIDAL IDEATION [None]
